FAERS Safety Report 16782748 (Version 2)
Quarter: 2019Q3

REPORT INFORMATION
  Report Type: Spontaneous
  Country: US (occurrence: US)
  Receive Date: 20190906
  Receipt Date: 20190924
  Transmission Date: 20191005
  Serious: No
  Sender: FDA-Public Use
  Company Number: US-ACTELION-A-NJ2019-194884

PATIENT
  Sex: Male

DRUGS (17)
  1. OPSUMIT [Concomitant]
     Active Substance: MACITENTAN
  2. SYMBICORT [Concomitant]
     Active Substance: BUDESONIDE\FORMOTEROL FUMARATE DIHYDRATE
  3. DIGOXIN. [Concomitant]
     Active Substance: DIGOXIN
  4. CLARITIN [Concomitant]
     Active Substance: LORATADINE
  5. PROTONIX [Concomitant]
     Active Substance: PANTOPRAZOLE SODIUM
  6. UPTRAVI [Suspect]
     Active Substance: SELEXIPAG
     Dosage: UNK
     Route: 048
     Dates: start: 20190819, end: 20190821
  7. CARDIZEM [Concomitant]
     Active Substance: DILTIAZEM HYDROCHLORIDE
  8. REVATIO [Concomitant]
     Active Substance: SILDENAFIL CITRATE
  9. DEMADEX [Concomitant]
     Active Substance: TORSEMIDE
  10. SPIRIVA [Concomitant]
     Active Substance: TIOTROPIUM BROMIDE MONOHYDRATE
  11. PROAIR HFA [Concomitant]
     Active Substance: ALBUTEROL SULFATE
  12. BETAPACE [Concomitant]
     Active Substance: SOTALOL HYDROCHLORIDE
  13. UPTRAVI [Suspect]
     Active Substance: SELEXIPAG
     Indication: PULMONARY ARTERIAL HYPERTENSION
     Dosage: 200 MCG, BID
     Route: 048
     Dates: start: 20190813, end: 20190817
  14. SYNTHROID [Concomitant]
     Active Substance: LEVOTHYROXINE SODIUM
  15. COUMADIN [Concomitant]
     Active Substance: WARFARIN SODIUM
  16. PLAVIX [Concomitant]
     Active Substance: CLOPIDOGREL BISULFATE
  17. PROVENTIL [Concomitant]
     Active Substance: ALBUTEROL

REACTIONS (6)
  - Diarrhoea [Recovered/Resolved]
  - Headache [Unknown]
  - Myalgia [Unknown]
  - Vomiting [Recovered/Resolved]
  - Nausea [Recovered/Resolved]
  - Rash [Recovered/Resolved]
